APPROVED DRUG PRODUCT: ISOSORBIDE MONONITRATE
Active Ingredient: ISOSORBIDE MONONITRATE
Strength: 60MG
Dosage Form/Route: TABLET, EXTENDED RELEASE;ORAL
Application: A075041 | Product #001
Applicant: ALKERMES GAINESVILLE LLC
Approved: Sep 22, 1998 | RLD: No | RS: No | Type: DISCN